FAERS Safety Report 12248482 (Version 1)
Quarter: 2016Q2

REPORT INFORMATION
  Report Type: Spontaneous
  Country: TW (occurrence: TW)
  Receive Date: 20160408
  Receipt Date: 20160408
  Transmission Date: 20160815
  Serious: Yes (Hospitalization)
  Sender: FDA-Public Use
  Company Number: TW-ELI_LILLY_AND_COMPANY-TW201604000391

PATIENT
  Age: 74 Year
  Sex: Male
  Weight: 78 kg

DRUGS (1)
  1. ERBITUX [Suspect]
     Active Substance: CETUXIMAB
     Indication: LARYNGEAL CANCER
     Dosage: UNK UNK, UNKNOWN
     Route: 065

REACTIONS (4)
  - Pneumonia aspiration [Not Recovered/Not Resolved]
  - Lung neoplasm malignant [Unknown]
  - Scrotal erythema [Unknown]
  - Cellulitis [Unknown]
